FAERS Safety Report 6756921-8 (Version None)
Quarter: 2010Q2

REPORT INFORMATION
  Report Type: 
  Country: None (occurrence: None)
  Receive Date: 20100604
  Receipt Date: 20100528
  Transmission Date: 20101027
  Serious: Yes (Death, Other)
  Sender: FDA-Public Use
  Company Number: US-WYE-H03794608

PATIENT
  Sex: Female

DRUGS (3)
  1. PREMARIN [Suspect]
  2. ESTRATAB [Suspect]
  3. PROVERA [Suspect]

REACTIONS (1)
  - BREAST CANCER METASTATIC [None]
